FAERS Safety Report 25547971 (Version 1)
Quarter: 2025Q3

REPORT INFORMATION
  Report Type: Report from Study
  Country: US (occurrence: US)
  Receive Date: 20250714
  Receipt Date: 20250714
  Transmission Date: 20251021
  Serious: Yes (Hospitalization)
  Sender: ABBVIE
  Company Number: US-ABBVIE-6360670

PATIENT
  Age: 75 Year
  Sex: Male

DRUGS (1)
  1. SKYRIZI [Suspect]
     Active Substance: RISANKIZUMAB-RZAA
     Indication: Crohn^s disease
     Route: 058
     Dates: start: 20250324

REACTIONS (7)
  - Bronchitis [Unknown]
  - Pruritus [Recovering/Resolving]
  - Haemoglobin decreased [Unknown]
  - Wheezing [Recovering/Resolving]
  - Myalgia [Recovering/Resolving]
  - Diarrhoea haemorrhagic [Recovering/Resolving]
  - Pneumonia [Unknown]

NARRATIVE: CASE EVENT DATE: 20250101
